FAERS Safety Report 25634327 (Version 1)
Quarter: 2025Q3

REPORT INFORMATION
  Report Type: Spontaneous
  Country: US (occurrence: None)
  Receive Date: 20250801
  Receipt Date: 20250801
  Transmission Date: 20251021
  Serious: Yes (Disabling, Other)
  Sender: FDA-CTU
  Company Number: None

PATIENT
  Age: 33 Year
  Sex: Male
  Weight: 90 kg

DRUGS (1)
  1. PANTOPRAZOLE [Suspect]
     Active Substance: PANTOPRAZOLE
     Indication: Gastrooesophageal reflux disease
     Dosage: 180 TABLET(S) TWICE A DAY ORAL
     Route: 048
     Dates: start: 20250725, end: 20250731

REACTIONS (4)
  - Pharyngeal swelling [None]
  - Sensation of foreign body [None]
  - Hypophagia [None]
  - Dyspnoea [None]

NARRATIVE: CASE EVENT DATE: 20250728
